FAERS Safety Report 17930787 (Version 1)
Quarter: 2020Q2

REPORT INFORMATION
  Report Type: Report from Study
  Country: US (occurrence: US)
  Receive Date: 20200623
  Receipt Date: 20200623
  Transmission Date: 20200714
  Serious: Yes (Hospitalization)
  Sender: FDA-Public Use
  Company Number: US-BIOGEN-2020BI00827868

PATIENT
  Sex: Male

DRUGS (1)
  1. TYSABRI [Suspect]
     Active Substance: NATALIZUMAB
     Indication: MULTIPLE SCLEROSIS
     Route: 042
     Dates: start: 20190709

REACTIONS (5)
  - Wound [Unknown]
  - Escherichia sepsis [Unknown]
  - Decubitus ulcer [Unknown]
  - Septic shock [Unknown]
  - Urinary tract infection [Unknown]
